FAERS Safety Report 8097546-4 (Version None)
Quarter: 2012Q1

REPORT INFORMATION
  Report Type: 
  Country: None (occurrence: None)
  Receive Date: 20120131
  Receipt Date: 20120119
  Transmission Date: 20120608
  Serious: Yes (Hospitalization, Other)
  Sender: FDA-Public Use
  Company Number: CN-NOVOPROD-343380

PATIENT
  Age: 50 Year
  Sex: Male
  Weight: 60 kg

DRUGS (4)
  1. NOVOLIN R [Suspect]
     Indication: TYPE 2 DIABETES MELLITUS
     Dosage: 18 IU IN THE MORNING AND 18 IU IN THE EVENING
     Route: 058
     Dates: start: 20091002
  2. NOVOLIN R [Suspect]
     Dosage: 18 IU IN THE MORNING AND 18 IU IN THE EVENING
     Route: 058
     Dates: end: 20111220
  3. ADEFOVIR DIPIVOXIL [Concomitant]
     Indication: PRODUCT USED FOR UNKNOWN INDICATION
     Dosage: 1 TABLET QD
     Route: 048
     Dates: start: 20100102
  4. NOVOLIN R [Suspect]
     Dosage: 18 IU IN THE MORNING AND 18 IU IN THE EVENING
     Route: 058

REACTIONS (4)
  - BLOOD GLUCOSE INCREASED [None]
  - SKIN ULCER [None]
  - PRODUCT QUALITY ISSUE [None]
  - SEPSIS [None]
